FAERS Safety Report 4607535-7 (Version None)
Quarter: 2005Q1

REPORT INFORMATION
  Report Type: 
  Country: None (occurrence: None)
  Receive Date: 20050309
  Receipt Date: 20050223
  Transmission Date: 20050727
  Serious: Yes (Death)
  Sender: FDA-Public Use
  Company Number: 2004SE06147

PATIENT
  Age: 19 Year
  Sex: Male
  Weight: 84 kg

DRUGS (6)
  1. SEROQUEL [Suspect]
     Indication: PSYCHOTIC DISORDER
     Dosage: 600 MG DAILY PO
     Route: 048
     Dates: start: 20021011
  2. SUBUTEX [Suspect]
  3. RIVOTRIL [Concomitant]
  4. TRUXAL [Concomitant]
  5. BURONIL [Concomitant]
  6. IMOVANE [Concomitant]

REACTIONS (4)
  - GINGIVAL BLEEDING [None]
  - PULMONARY HAEMORRHAGE [None]
  - SELF-MEDICATION [None]
  - SPLENOMEGALY [None]
